FAERS Safety Report 13391874 (Version 1)
Quarter: 2017Q1

REPORT INFORMATION
  Report Type: Spontaneous
  Country: US (occurrence: US)
  Receive Date: 20170331
  Receipt Date: 20170331
  Transmission Date: 20170429
  Serious: No
  Sender: FDA-Public Use
  Company Number: US-MYLANLABS-2016M1019664

PATIENT
  Age: 39 Year
  Sex: Male
  Weight: 84.35 kg

DRUGS (2)
  1. FENTANYL TRANSDERMAL SYSTEM [Suspect]
     Active Substance: FENTANYL
     Indication: PAIN
     Dosage: 75 ?G/HR, CHANGES Q72H
     Route: 062
     Dates: start: 201512, end: 201605
  2. OXYCODONE [Concomitant]
     Active Substance: OXYCODONE
     Indication: BREAKTHROUGH PAIN
     Dosage: 5 MG, Q6H
     Route: 048

REACTIONS (6)
  - Application site pruritus [Recovered/Resolved]
  - Drug withdrawal syndrome [Recovered/Resolved]
  - Drug effect decreased [Recovered/Resolved]
  - Insomnia [Recovered/Resolved]
  - Application site haemorrhage [Recovered/Resolved]
  - Application site vesicles [Recovered/Resolved]

NARRATIVE: CASE EVENT DATE: 201512
